FAERS Safety Report 11029138 (Version 2)
Quarter: 2015Q2

REPORT INFORMATION
  Report Type: Spontaneous
  Country: CN (occurrence: CN)
  Receive Date: 20150414
  Receipt Date: 20150423
  Transmission Date: 20150821
  Serious: Yes (Hospitalization)
  Sender: FDA-Public Use
  Company Number: CN-JNJFOC-20150405317

PATIENT
  Age: 11 Month

DRUGS (1)
  1. MOTRIN CHILDREN [Suspect]
     Active Substance: IBUPROFEN
     Indication: PYREXIA
     Dosage: 5 ML ONE TIME
     Route: 048
     Dates: start: 20150404

REACTIONS (4)
  - Prescribed overdose [None]
  - Incorrect dose administered [Unknown]
  - Hyperhidrosis [Recovered/Resolved]
  - Drug prescribing error [Unknown]

NARRATIVE: CASE EVENT DATE: 20150404
